FAERS Safety Report 11045209 (Version 1)
Quarter: 2015Q2

REPORT INFORMATION
  Report Type: Report from Study
  Country: AU (occurrence: AU)
  Receive Date: 20150417
  Receipt Date: 20150417
  Transmission Date: 20150821
  Serious: Yes (Hospitalization)
  Sender: FDA-Public Use
  Company Number: AU-PFIZER INC-2015124436

PATIENT
  Age: 18 Year
  Sex: Female

DRUGS (8)
  1. METFORMIN HCL [Suspect]
     Active Substance: METFORMIN HYDROCHLORIDE
     Dosage: 14 G, UNK
  2. IRBESARTAN. [Suspect]
     Active Substance: IRBESARTAN
     Dosage: 2100 MG, UNK
  3. ATORVASTATIN CALCIUM. [Suspect]
     Active Substance: ATORVASTATIN CALCIUM
     Dosage: 280 MG, UNK
  4. ASPIRIN. [Suspect]
     Active Substance: ASPIRIN
     Dosage: 700 MG, UNK
  5. GLICLAZIDE MR [Suspect]
     Active Substance: GLICLAZIDE
     Dosage: 840 MG, UNK
  6. THYROXINE [Suspect]
     Active Substance: LEVOTHYROXINE
     Dosage: 1050 ?G, UNK
  7. CARBAMAZEPINE. [Suspect]
     Active Substance: CARBAMAZEPINE
     Dosage: 700 MG, UNK
  8. OMEPRAZOLE. [Suspect]
     Active Substance: OMEPRAZOLE
     Dosage: 140 MG, UNK

REACTIONS (3)
  - Acidosis [Unknown]
  - Hyperlactacidaemia [Unknown]
  - Intentional overdose [Unknown]
